FAERS Safety Report 10529338 (Version 2)
Quarter: 2014Q4

REPORT INFORMATION
  Report Type: Spontaneous
  Country: IT (occurrence: IT)
  Receive Date: 20141021
  Receipt Date: 20141110
  Transmission Date: 20150528
  Serious: Yes (Hospitalization)
  Sender: FDA-Public Use
  Company Number: IT-AUROBINDO-AUR-APL-2014-11060

PATIENT
  Age: 58 Year
  Sex: Male

DRUGS (1)
  1. LEVOFLOXACIN 500MG [Suspect]
     Active Substance: LEVOFLOXACIN
     Indication: BRONCHITIS
     Dosage: 500 MG, TOTAL
     Route: 048
     Dates: start: 20140924, end: 20140924

REACTIONS (3)
  - Lip oedema [Recovering/Resolving]
  - Dysphonia [Recovering/Resolving]
  - Palatal oedema [Recovering/Resolving]

NARRATIVE: CASE EVENT DATE: 20140924
